FAERS Safety Report 8172980 (Version 3)
Quarter: 2012Q4

REPORT INFORMATION
  Report Type: Spontaneous
  Country: US (occurrence: US)
  Receive Date: 20111007
  Receipt Date: 20121218
  Transmission Date: 20130627
  Serious: Yes (Death, Hospitalization)
  Sender: FDA-Public Use
  Company Number: PHEH2011US06100

PATIENT
  Age: 53 Year
  Sex: Female

DRUGS (9)
  1. ZOMETA (ZOLEDRONATE) UNKNOWN [Suspect]
  2. CALCIUM(CALCIUM) [Concomitant]
  3. MS CONTIN (MORPHINE SULFATE) [Concomitant]
     Dosage: 120 mg, BID
  4. CAD (CALCIUM CARBONATE, COLECALCIFEROL) [Concomitant]
  5. MORPHINE SULFATE (MORPHINE SULFATE) [Concomitant]
     Dosage: 2 mg, UNK
  6. MORPHINE (MORPHINE) (UNKNOWN) (MORPHINE) [Concomitant]
     Dosage: 30 mg, PRN
     Route: 048
  7. LORAZEPAM (LORAZEPAM) [Concomitant]
     Dosage: 0.5 mg, PRN
     Route: 048
  8. DEXAMETHASONE (DEXAMETHASONE) [Concomitant]
     Dosage: 4 mg, daily
  9. LOVENOX (HEPARIN-FRACTION, SODIUM SALT) [Concomitant]
     Dosage: 60 mg, daily

REACTIONS (5)
  - Neoplasm progression [Fatal]
  - Neoplasm malignant [Fatal]
  - Metastases to bone [Fatal]
  - Hypercalcaemia [Recovering/Resolving]
  - Squamous cell carcinoma of lung [None]
